FAERS Safety Report 8030350-1 (Version None)
Quarter: 2012Q1

REPORT INFORMATION
  Report Type: 
  Country: None (occurrence: None)
  Receive Date: 20120109
  Receipt Date: 20111230
  Transmission Date: 20120608
  Serious: Yes (Hospitalization)
  Sender: FDA-Public Use
  Company Number: US-BAYER-2011-026909

PATIENT
  Age: 26 Year
  Sex: Female
  Weight: 57 kg

DRUGS (6)
  1. ERRIN [Concomitant]
     Dosage: UNK
     Dates: start: 20090201
  2. YASMIN [Suspect]
     Indication: ORAL CONTRACEPTION
     Dosage: UNK
     Dates: start: 20040201, end: 20060701
  3. LOESTRIN 1.5/30 [Concomitant]
     Dosage: UNK
     Dates: start: 20090101, end: 20100101
  4. IBUPROFEN [Concomitant]
  5. ERRIN [Concomitant]
     Dosage: UNK
     Dates: start: 20091127
  6. CAMILA [Concomitant]
     Dosage: UNK
     Dates: start: 20090101

REACTIONS (8)
  - INJURY [None]
  - ANXIETY [None]
  - CHOLELITHIASIS [None]
  - ANHEDONIA [None]
  - PAIN [None]
  - CHOLECYSTECTOMY [None]
  - GENERAL PHYSICAL HEALTH DETERIORATION [None]
  - EMOTIONAL DISTRESS [None]
